FAERS Safety Report 14527929 (Version 4)
Quarter: 2021Q2

REPORT INFORMATION
  Report Type: Spontaneous
  Country: US (occurrence: US)
  Receive Date: 20180213
  Receipt Date: 20210525
  Transmission Date: 20210716
  Serious: Yes (Hospitalization, Other)
  Sender: FDA-Public Use
  Company Number: US-VIFOR (INTERNATIONAL) INC.-VIT-2018-01431

PATIENT
  Age: 75 Year
  Sex: Female

DRUGS (11)
  1. ACTOS [Concomitant]
     Active Substance: PIOGLITAZONE HYDROCHLORIDE
  2. CALCITRIOL. [Concomitant]
     Active Substance: CALCITRIOL
  3. LASIX [Concomitant]
     Active Substance: FUROSEMIDE
  4. VELTASSA [Suspect]
     Active Substance: PATIROMER
     Indication: HYPERKALAEMIA
     Route: 048
     Dates: start: 20160506, end: 2018
  5. HYDROCODONE?ACETAMINOPHEN [Concomitant]
     Active Substance: ACETAMINOPHEN\HYDROCODONE
  6. UROCIT?K [Concomitant]
     Active Substance: POTASSIUM CITRATE
  7. AMLODIPINE BESYLATE. [Concomitant]
     Active Substance: AMLODIPINE BESYLATE
  8. CITALOPRAM HYDROBROMIDE. [Concomitant]
     Active Substance: CITALOPRAM HYDROBROMIDE
  9. VITAMIN D2 [Concomitant]
     Active Substance: ERGOCALCIFEROL
  10. VELTASSA [Suspect]
     Active Substance: PATIROMER
     Route: 048
     Dates: start: 2018
  11. PROCRIT [Concomitant]
     Active Substance: ERYTHROPOIETIN

REACTIONS (7)
  - Infection [Recovered/Resolved]
  - Blood potassium increased [Recovered/Resolved]
  - Off label use [Unknown]
  - Depression [Unknown]
  - Hyperkalaemia [Unknown]
  - Dialysis device insertion [Unknown]
  - Tooth infection [Unknown]

NARRATIVE: CASE EVENT DATE: 20160506
